FAERS Safety Report 4300008-0 (Version None)
Quarter: 2004Q1

REPORT INFORMATION
  Report Type: 
  Country: None (occurrence: None)
  Receive Date: 20040219
  Receipt Date: 20040219
  Transmission Date: 20041129
  Serious: Yes (Hospitalization)
  Sender: FDA-Public Use
  Company Number: None

PATIENT
  Age: 50 Year
  Sex: Male
  Weight: 59.4212 kg

DRUGS (2)
  1. PERCOCET-5 [Suspect]
     Indication: CANCER PAIN
     Dosage: 1-2 Q4H
  2. OXYCONTIN [Suspect]
     Indication: CANCER PAIN
     Dosage: 2Q12H

REACTIONS (2)
  - ABDOMINAL PAIN [None]
  - CONSTIPATION [None]
